FAERS Safety Report 10292919 (Version 1)
Quarter: 2014Q3

REPORT INFORMATION
  Report Type: Spontaneous
  Country: US (occurrence: US)
  Receive Date: 20140710
  Receipt Date: 20140710
  Transmission Date: 20150326
  Serious: No
  Sender: FDA-Public Use
  Company Number: US-SA-2013SA115016

PATIENT
  Age: 87 Year
  Sex: Male

DRUGS (1)
  1. AMARYL [Suspect]
     Active Substance: GLIMEPIRIDE
     Indication: TYPE 2 DIABETES MELLITUS
     Dosage: TAKEN FROM-10 YEARS AGO
     Route: 048

REACTIONS (3)
  - Sleep disorder [Unknown]
  - Anxiety [Unknown]
  - Blood glucose increased [Unknown]
